FAERS Safety Report 21510664 (Version 1)
Quarter: 2022Q4

REPORT INFORMATION
  Report Type: Spontaneous
  Country: US (occurrence: US)
  Receive Date: 20221026
  Receipt Date: 20221026
  Transmission Date: 20230113
  Serious: No
  Sender: FDA-Public Use
  Company Number: US-ALLERGAN-2218249US

PATIENT
  Sex: Male

DRUGS (2)
  1. RAPAFLO [Suspect]
     Active Substance: SILODOSIN
     Indication: Product used for unknown indication
  2. DUOPA [Suspect]
     Active Substance: CARBIDOPA\LEVODOPA
     Indication: Product used for unknown indication

REACTIONS (6)
  - Nephrolithiasis [Unknown]
  - Peripheral swelling [Unknown]
  - Lymphocyte count increased [Unknown]
  - Blood glucose decreased [Unknown]
  - Hypertonic bladder [Unknown]
  - Balanoposthitis [Unknown]
